FAERS Safety Report 4710847-X (Version None)
Quarter: 2005Q3

REPORT INFORMATION
  Report Type: 
  Country: None (occurrence: None)
  Receive Date: 20050711
  Receipt Date: 20050707
  Transmission Date: 20060218
  Serious: Yes (Hospitalization)
  Sender: FDA-Public Use
  Company Number: 173

PATIENT
  Age: 53 Year
  Sex: Male
  Weight: 79.1 kg

DRUGS (20)
  1. MELPHALAN [Suspect]
     Indication: MULTIPLE MYELOMA
     Dosage: 368MG SINGLE DOSE
     Route: 042
     Dates: start: 20041123
  2. THALIDOMIDE [Suspect]
     Indication: MULTIPLE MYELOMA
     Dosage: 100MG PER DAY
     Route: 048
     Dates: start: 20041220, end: 20050125
  3. DEXAMETHASONE [Suspect]
     Indication: MULTIPLE MYELOMA
     Dosage: 20MG PER DAY
     Route: 048
     Dates: start: 20041220, end: 20041224
  4. AREDIA [Concomitant]
  5. DIFLUCAN [Concomitant]
  6. FLUTAMIDE [Concomitant]
     Indication: HORMONE REPLACEMENT THERAPY
     Route: 048
  7. DIOVAN [Concomitant]
     Indication: HYPERTENSION
     Route: 048
  8. FOLATE [Concomitant]
  9. NIFEREX [Concomitant]
  10. CALCIUM GLUCONATE [Concomitant]
  11. ACYCLOVIR [Concomitant]
     Dosage: 400MG TWICE PER DAY
  12. ZANTAC [Concomitant]
  13. WELLBUTRIN [Concomitant]
     Indication: DEPRESSION
  14. TRICOR [Concomitant]
  15. PEPCID [Concomitant]
  16. AMBIEN [Concomitant]
     Indication: INSOMNIA
     Dosage: 10MG AT NIGHT
  17. DARVON [Concomitant]
  18. ATIVAN [Concomitant]
  19. IMODIUM [Concomitant]
  20. COLACE [Concomitant]

REACTIONS (3)
  - DEEP VEIN THROMBOSIS [None]
  - PAIN IN EXTREMITY [None]
  - SWELLING [None]
